FAERS Safety Report 5127258-8 (Version None)
Quarter: 2006Q4

REPORT INFORMATION
  Report Type: 
  Country: None (occurrence: None)
  Receive Date: 20061010
  Receipt Date: 20061002
  Transmission Date: 20070319
  Serious: Yes (Other)
  Sender: FDA-Public Use
  Company Number: 2006106521

PATIENT
  Age: 78 Year
  Sex: Male
  Weight: 80 kg

DRUGS (4)
  1. DIMENHYDRINATE [Suspect]
     Indication: DIZZINESS
     Dosage: 1 TABLET TWICE DAILY, ORAL
     Route: 048
     Dates: start: 20060827
  2. TERAZOSIN HCL [Concomitant]
  3. ASPIRIN [Concomitant]
  4. BUFLOMEDIL (BUFLOMEDIL) [Concomitant]

REACTIONS (3)
  - FACIAL PALSY [None]
  - VIRAL INFECTION [None]
  - VOMITING [None]
